FAERS Safety Report 21332287 (Version 1)
Quarter: 2022Q3

REPORT INFORMATION
  Report Type: Report from Study
  Country: TW (occurrence: TW)
  Receive Date: 20220914
  Receipt Date: 20220914
  Transmission Date: 20221026
  Serious: Yes (Death, Hospitalization)
  Sender: FDA-Public Use
  Company Number: TW-KARYOPHARM-2022KPT001052

PATIENT
  Age: 49 Year
  Sex: Male

DRUGS (7)
  1. SELINEXOR [Suspect]
     Active Substance: SELINEXOR
     Indication: Diffuse large B-cell lymphoma
     Dosage: 40 MG, 2X/WEEK
     Route: 048
     Dates: start: 20220802, end: 202208
  2. DEXAMETHASONE [Concomitant]
     Active Substance: DEXAMETHASONE
  3. AKYNZEO [Concomitant]
     Indication: Prophylaxis
  4. MEGESTROL [Concomitant]
     Active Substance: MEGESTROL
     Dosage: 160 MG, QD
  5. ESTAZOLAM [Concomitant]
     Active Substance: ESTAZOLAM
     Dosage: 2 MG, AT NIGHT
  6. DEXLANSOPRAZOLE [Concomitant]
     Active Substance: DEXLANSOPRAZOLE
     Dosage: 60 MG, QD
  7. SULFAMETHOXAZOLE\TRIMETHOPRIM [Concomitant]
     Active Substance: SULFAMETHOXAZOLE\TRIMETHOPRIM
     Dosage: 400-80 MG, QD

REACTIONS (3)
  - Death [Fatal]
  - Pneumonia aspiration [Unknown]
  - Septic shock [Unknown]

NARRATIVE: CASE EVENT DATE: 20220801
